FAERS Safety Report 22278497 (Version 2)
Quarter: 2023Q2

REPORT INFORMATION
  Report Type: Spontaneous
  Country: BR (occurrence: BR)
  Receive Date: 20230503
  Receipt Date: 20230524
  Transmission Date: 20230722
  Serious: Yes (Other)
  Sender: FDA-Public Use
  Company Number: BR-Ipsen Biopharmaceuticals, Inc.-2023-09796

PATIENT
  Age: 66 Year
  Sex: Male

DRUGS (2)
  1. LANREOTIDE ACETATE [Suspect]
     Active Substance: LANREOTIDE ACETATE
     Indication: Neuroendocrine tumour
     Route: 065
  2. CODEINE [Concomitant]
     Active Substance: CODEINE
     Indication: Pain

REACTIONS (3)
  - Malignant neoplasm progression [Unknown]
  - Neuropathy peripheral [Unknown]
  - Cardiac disorder [Unknown]
